FAERS Safety Report 19271225 (Version 3)
Quarter: 2021Q2

REPORT INFORMATION
  Report Type: Report from Study
  Country: US (occurrence: US)
  Receive Date: 20210518
  Receipt Date: 20210608
  Transmission Date: 20210717
  Serious: Yes (Hospitalization, Other)
  Sender: FDA-Public Use
  Company Number: US-EXELIXIS-XL18421040438

PATIENT

DRUGS (21)
  1. NIVOLUMAB [Suspect]
     Active Substance: NIVOLUMAB
     Indication: LEIOMYOSARCOMA
     Dosage: 3 MG/KG, Q3WEEKS
     Route: 042
     Dates: start: 20210202, end: 20210504
  2. ATIVAN [Concomitant]
     Active Substance: LORAZEPAM
  3. ROXICODONE [Concomitant]
     Active Substance: OXYCODONE HYDROCHLORIDE
  4. MIRALAX [Concomitant]
     Active Substance: POLYETHYLENE GLYCOL 3350
  5. SENOKOT [Concomitant]
     Active Substance: SENNOSIDES
  6. PROTONIX [Concomitant]
     Active Substance: PANTOPRAZOLE SODIUM
  7. PHENERGAN [Concomitant]
     Active Substance: PROMETHAZINE HYDROCHLORIDE
  8. ULTRAM [Concomitant]
     Active Substance: TRAMADOL HYDROCHLORIDE
  9. KENALOG [Concomitant]
     Active Substance: TRIAMCINOLONE ACETONIDE
  10. PRINIVIL [Concomitant]
     Active Substance: LISINOPRIL
  11. HYDROCORTISONE ACETATE. [Concomitant]
     Active Substance: HYDROCORTISONE ACETATE
  12. FOLVITE [Concomitant]
     Active Substance: FOLIC ACID
  13. COMPAZINE [Concomitant]
     Active Substance: PROCHLORPERAZINE MALEATE
  14. IPILIMUMAB [Suspect]
     Active Substance: IPILIMUMAB
     Indication: LEIOMYOSARCOMA
     Dosage: 1 MG/KG, Q4WEEKS
     Route: 042
     Dates: start: 20210202, end: 20210504
  15. XL184 [Suspect]
     Active Substance: CABOZANTINIB
     Indication: LEIOMYOSARCOMA
     Dosage: 20 MG, QD
     Route: 048
     Dates: start: 20210202, end: 20210503
  16. PEPCID [Concomitant]
     Active Substance: FAMOTIDINE
  17. ZESTRIL [Concomitant]
     Active Substance: LISINOPRIL
  18. AUGMENTIN [Concomitant]
     Active Substance: AMOXICILLIN\CLAVULANATE POTASSIUM
  19. RITALIN [Concomitant]
     Active Substance: METHYLPHENIDATE HYDROCHLORIDE
  20. ELAVIL [Concomitant]
     Active Substance: AMITRIPTYLINE HYDROCHLORIDE
  21. RIVAROXABAN [Concomitant]
     Active Substance: RIVAROXABAN

REACTIONS (3)
  - Small intestinal obstruction [Unknown]
  - Sepsis [Unknown]
  - Tumour obstruction [Unknown]

NARRATIVE: CASE EVENT DATE: 20210511
